FAERS Safety Report 6127355-4 (Version None)
Quarter: 2009Q1

REPORT INFORMATION
  Report Type: 
  Country: None (occurrence: None)
  Receive Date: 20090319
  Receipt Date: 20090303
  Transmission Date: 20090719
  Serious: Yes (Hospitalization)
  Sender: FDA-Public Use
  Company Number: 2009S1002278

PATIENT
  Sex: Male

DRUGS (2)
  1. PHOSPHOSODA FLAVOR NOT SPECIFIED [Suspect]
     Indication: ENDOSCOPY
     Dosage: 90 ML; TOTAL; PO
     Route: 048
     Dates: start: 20081013, end: 20081014
  2. REMICADE [Concomitant]

REACTIONS (10)
  - ANAEMIA [None]
  - CONDITION AGGRAVATED [None]
  - DRUG TOXICITY [None]
  - FATIGUE [None]
  - HYPERPHOSPHATAEMIA [None]
  - INFLUENZA LIKE ILLNESS [None]
  - NAUSEA [None]
  - RENAL FAILURE ACUTE [None]
  - RENAL IMPAIRMENT [None]
  - WEIGHT DECREASED [None]
